FAERS Safety Report 23897568 (Version 1)
Quarter: 2024Q2

REPORT INFORMATION
  Report Type: Spontaneous
  Country: US (occurrence: US)
  Receive Date: 20240524
  Receipt Date: 20240524
  Transmission Date: 20240716
  Serious: Yes (Hospitalization)
  Sender: FDA-Public Use
  Company Number: US-MYLANLABS-2024M1047528

PATIENT
  Age: 83 Year
  Sex: Female

DRUGS (2)
  1. DILTIAZEM [Suspect]
     Active Substance: DILTIAZEM
     Indication: Atrial fibrillation
     Dosage: UNK
     Route: 065
  2. METOPROLOL [Suspect]
     Active Substance: METOPROLOL
     Indication: Atrial fibrillation
     Dosage: UNK
     Route: 065

REACTIONS (4)
  - Acute generalised exanthematous pustulosis [Recovering/Resolving]
  - Intentional product misuse [Unknown]
  - Fatigue [Unknown]
  - Off label use [Unknown]
